FAERS Safety Report 9311855 (Version 2)
Quarter: 2013Q4

REPORT INFORMATION
  Report Type: Spontaneous
  Country: US (occurrence: US)
  Receive Date: 20130528
  Receipt Date: 20131015
  Transmission Date: 20140711
  Serious: Yes (Other)
  Sender: FDA-Public Use
  Company Number: PHHY2013US051609

PATIENT
  Age: 29 Year
  Sex: Female

DRUGS (1)
  1. ZOLPIDEM [Suspect]
     Indication: INSOMNIA
     Dosage: 5 MG, QHS
     Route: 048

REACTIONS (2)
  - Galactorrhoea [Recovered/Resolved]
  - Breast tenderness [Recovered/Resolved]
